FAERS Safety Report 7662770-9 (Version None)
Quarter: 2011Q3

REPORT INFORMATION
  Report Type: 
  Country: None (occurrence: None)
  Receive Date: 20110805
  Receipt Date: 20100830
  Transmission Date: 20111222
  Serious: No
  Sender: FDA-Public Use
  Company Number: US-ABBOTT-10P-163-0666806-00

PATIENT
  Sex: Male
  Weight: 113.5 kg

DRUGS (6)
  1. NIASPAN [Suspect]
     Indication: PRODUCT USED FOR UNKNOWN INDICATION
     Dosage: AT HOUR OF SLEEP
     Dates: start: 20100801
  2. LISINOPRIL [Concomitant]
     Indication: PRODUCT USED FOR UNKNOWN INDICATION
  3. ASPIRIN [Concomitant]
     Indication: PRODUCT USED FOR UNKNOWN INDICATION
     Dosage: AT HOUR OF SLEEP
  4. SIMVASTATIN [Concomitant]
     Indication: PRODUCT USED FOR UNKNOWN INDICATION
  5. PLAVIX [Concomitant]
     Indication: PRODUCT USED FOR UNKNOWN INDICATION
  6. METOPROLOL TARTRATE [Concomitant]
     Indication: PRODUCT USED FOR UNKNOWN INDICATION

REACTIONS (2)
  - FEELING HOT [None]
  - FLUSHING [None]
